FAERS Safety Report 5476853-5 (Version None)
Quarter: 2007Q4

REPORT INFORMATION
  Report Type: 
  Country: None (occurrence: None)
  Receive Date: 20071004
  Receipt Date: 20070926
  Transmission Date: 20080405
  Serious: Yes (Other)
  Sender: FDA-Public Use
  Company Number: BR-ROCHE-522088

PATIENT
  Age: 29 Year
  Sex: Female

DRUGS (2)
  1. ISOTRETINOIN [Suspect]
     Indication: ACNE
     Route: 048
     Dates: start: 20060701, end: 20070710
  2. CONTRACEPTIVE DRUG NOS [Concomitant]
     Indication: CONTRACEPTION
     Route: 048
     Dates: end: 20070801

REACTIONS (3)
  - DRUG EXPOSURE BEFORE PREGNANCY [None]
  - NO ADVERSE REACTION [None]
  - PREGNANCY [None]
